FAERS Safety Report 7559063-7 (Version None)
Quarter: 2011Q2

REPORT INFORMATION
  Report Type: 
  Country: None (occurrence: None)
  Receive Date: 20110613
  Receipt Date: 20090630
  Transmission Date: 20111010
  Serious: Yes (Disabling)
  Sender: FDA-Public Use
  Company Number: NZ-ACCORD-009335

PATIENT
  Age: 67 Year
  Sex: Male

DRUGS (2)
  1. MITOMYCIN [Suspect]
     Indication: SQUAMOUS CELL CARCINOMA
     Dosage: 10.00-MG/M2
  2. FLUOROURACIL [Suspect]
     Indication: SQUAMOUS CELL CARCINOMA
     Dosage: 1000.00-MG/M2

REACTIONS (1)
  - OSTEONECROSIS [None]
